FAERS Safety Report 24419528 (Version 1)
Quarter: 2024Q4

REPORT INFORMATION
  Report Type: Spontaneous
  Country: US (occurrence: US)
  Receive Date: 20241010
  Receipt Date: 20241010
  Transmission Date: 20250114
  Serious: Yes (Other)
  Sender: EMCURE
  Company Number: US-AVET LIFESCIENCES LTD-2024-AVET-000355

PATIENT
  Age: 26 Year
  Sex: Female

DRUGS (3)
  1. SERTRALINE HYDROCHLORIDE [Suspect]
     Active Substance: SERTRALINE HYDROCHLORIDE
     Indication: Product used for unknown indication
     Dosage: UNK
     Route: 065
  2. RIBOFLAVIN [Concomitant]
     Active Substance: RIBOFLAVIN
     Indication: Multiple acyl-coenzyme A dehydrogenase deficiency
     Dosage: UNK
  3. CARNITINE [Concomitant]
     Active Substance: CARNITINE
     Indication: Multiple acyl-coenzyme A dehydrogenase deficiency
     Dosage: UNK

REACTIONS (2)
  - Rhabdomyolysis [Recovered/Resolved]
  - Multiple acyl-coenzyme A dehydrogenase deficiency [Recovered/Resolved]
